FAERS Safety Report 15834751 (Version 1)
Quarter: 2019Q1

REPORT INFORMATION
  Report Type: Spontaneous
  Country: DE (occurrence: DE)
  Receive Date: 20190116
  Receipt Date: 20190116
  Transmission Date: 20190417
  Serious: Yes (Life-Threatening, Hospitalization)
  Sender: FDA-Public Use
  Company Number: DE-ELI_LILLY_AND_COMPANY-DE201901006362

PATIENT
  Age: 43 Year
  Sex: Male

DRUGS (1)
  1. ZYPADHERA [Suspect]
     Active Substance: OLANZAPINE PAMOATE
     Indication: SCHIZOPHRENIA
     Dosage: UNK, UNKNOWN
     Route: 030

REACTIONS (5)
  - Extensor plantar response [Unknown]
  - Somnolence [Unknown]
  - Miosis [Unknown]
  - Disturbance in attention [Unknown]
  - Dysarthria [Unknown]

NARRATIVE: CASE EVENT DATE: 20181221
